FAERS Safety Report 9403771 (Version 1)
Quarter: 2013Q3

REPORT INFORMATION
  Report Type: Spontaneous
  Country: US (occurrence: US)
  Receive Date: 20130717
  Receipt Date: 20130717
  Transmission Date: 20140515
  Serious: No
  Sender: FDA-Public Use
  Company Number: US-BAYER-2013-086244

PATIENT
  Age: 54 Year
  Sex: Male
  Weight: 108.84 kg

DRUGS (10)
  1. BETASERON [Suspect]
     Indication: PRIMARY PROGRESSIVE MULTIPLE SCLEROSIS
     Dosage: 0.25 MG, QOD
     Route: 058
  2. EFFEXOR [Concomitant]
     Dosage: 100 MG, UNK
  3. TRICOR [Concomitant]
     Dosage: 145 MG, UNK
  4. LANTUS [Concomitant]
     Dosage: 100 ML, UNK
  5. TIZANIDINE [Concomitant]
     Dosage: 4 MG, UNK
  6. NOVOLOG [Concomitant]
     Dosage: 100 ML, UNK
  7. ADVIL [Concomitant]
     Dosage: 200 MG, UNK
  8. LOSARTAN POTASSIUM [Concomitant]
     Dosage: 100 MG, UNK
  9. AMPYRA [Concomitant]
     Dosage: 10 MG, UNK
  10. TYLENOL [PARACETAMOL] [Concomitant]
     Dosage: 325 MG, UNK

REACTIONS (2)
  - Drug ineffective [Unknown]
  - Off label use [Unknown]
